FAERS Safety Report 25274156 (Version 4)
Quarter: 2025Q3

REPORT INFORMATION
  Report Type: Spontaneous
  Country: US (occurrence: US)
  Receive Date: 20250506
  Receipt Date: 20250710
  Transmission Date: 20251021
  Serious: Yes (Hospitalization)
  Sender: MYLAN
  Company Number: US-MYLANLABS-2025M1036548

PATIENT
  Age: 77 Year
  Sex: Male
  Weight: 74.39 kg

DRUGS (5)
  1. WIXELA INHUB [Suspect]
     Active Substance: FLUTICASONE PROPIONATE\SALMETEROL XINAFOATE
     Indication: Dyspnoea
     Dosage: 250/50 MICROGRAM, BID (1 PUFF BY MOUTH TWICE A DAY)
     Dates: start: 20250411
  2. ATORVASTATIN [Concomitant]
     Active Substance: ATORVASTATIN
  3. ELIQUIS [Concomitant]
     Active Substance: APIXABAN
  4. TORSEMIDE [Concomitant]
     Active Substance: TORSEMIDE
  5. IRON [Concomitant]
     Active Substance: IRON

REACTIONS (3)
  - Hospitalisation [Unknown]
  - Panic attack [Unknown]
  - Drug ineffective [Unknown]

NARRATIVE: CASE EVENT DATE: 20250413
